FAERS Safety Report 8000637-7 (Version None)
Quarter: 2011Q4

REPORT INFORMATION
  Report Type: 
  Country: None (occurrence: None)
  Receive Date: 20111222
  Receipt Date: 20111216
  Transmission Date: 20120403
  Serious: Yes (Death, Hospitalization, Other)
  Sender: FDA-Public Use
  Company Number: JP-CELGENEUS-087-50794-11122472

PATIENT
  Sex: Male
  Weight: 45 kg

DRUGS (30)
  1. NITRAZEPAM [Concomitant]
     Dosage: 5 MILLIGRAM
     Route: 048
  2. DOGMATYL [Concomitant]
     Dosage: 150 MILLIGRAM
     Route: 048
     Dates: start: 20110513
  3. SEROTONE [Concomitant]
     Dosage: 10 MILLIGRAM
     Route: 048
     Dates: start: 20110811, end: 20110817
  4. GASMOTIN [Concomitant]
     Dosage: 15 MILLIGRAM
     Route: 048
     Dates: start: 20110614
  5. CISDYNE [Concomitant]
     Dosage: 1500 MILLIGRAM
     Route: 048
     Dates: start: 20110620
  6. FLOMOX [Concomitant]
     Dosage: 300 MILLIGRAM
     Route: 048
     Dates: start: 20110805, end: 20110812
  7. SENNOSIDE [Concomitant]
     Route: 048
  8. VIDAZA [Suspect]
     Dosage: 75 MILLIGRAM/SQ. METER
     Route: 058
     Dates: start: 20110714, end: 20110720
  9. LEVOFLOXACIN [Concomitant]
     Dosage: 500 MILLIGRAM
     Route: 048
     Dates: start: 20110428, end: 20110721
  10. MUCOBULIN [Concomitant]
     Dosage: 45 MILLIGRAM
     Route: 048
     Dates: start: 20110620
  11. CEFTRIAXONE [Concomitant]
     Dosage: 3 GRAM
     Route: 041
     Dates: start: 20110726, end: 20110801
  12. AVELOX [Concomitant]
     Dosage: 400 MILLIGRAM
     Route: 048
     Dates: start: 20110812, end: 20110818
  13. FLUCONAZOLE [Concomitant]
     Dosage: 200 MILLIGRAM
     Route: 041
     Dates: start: 20110721, end: 20110722
  14. NEU-UP [Concomitant]
     Dosage: 100 MICROGRAM
     Route: 041
     Dates: start: 20110823, end: 20110824
  15. SEROTONE [Concomitant]
     Dosage: 10 MILLIGRAM
     Route: 048
     Dates: start: 20110506, end: 20110512
  16. SEROTONE [Concomitant]
     Dosage: 10 MILLIGRAM
     Route: 048
     Dates: start: 20110714, end: 20110720
  17. CEFEPIME [Concomitant]
     Dosage: 3 GRAM
     Route: 041
     Dates: start: 20110520, end: 20110524
  18. DORIPENEM MONOHYDRATE [Concomitant]
     Dosage: 1.5 GRAM
     Route: 041
     Dates: start: 20110819, end: 20110824
  19. SULBACTAM-AMPICILLIN [Concomitant]
     Dosage: 4.5 GRAM
     Route: 041
     Dates: start: 20110721, end: 20110725
  20. FLUCONAZOLE [Concomitant]
     Dosage: 100 MILLIGRAM
     Route: 041
     Dates: start: 20110723, end: 20110801
  21. VIDAZA [Suspect]
     Indication: MYELODYSPLASTIC SYNDROME
     Dosage: 75 MILLIGRAM/SQ. METER
     Route: 058
     Dates: start: 20110506, end: 20110512
  22. VIDAZA [Suspect]
     Dosage: 75 MICROGRAM/SQ. METER
     Route: 058
     Dates: start: 20110603, end: 20110609
  23. TORACONA [Concomitant]
     Dosage: 100 MILLIGRAM
     Route: 048
     Dates: start: 20110428, end: 20110721
  24. LOXOPROFEN [Concomitant]
     Dosage: 60 MILLIGRAM
     Route: 048
     Dates: start: 20110520
  25. VIDAZA [Suspect]
     Dosage: 75 MILLIGRAM/SQ. METER
     Route: 058
     Dates: start: 20110811, end: 20110817
  26. SCOPOLAMINE [Concomitant]
     Dosage: 30 MILLIGRAM
     Route: 048
  27. MECOBALAMIN [Concomitant]
     Dosage: 1500 MILLIGRAM
     Route: 048
     Dates: start: 20110510
  28. DORIPENEM MONOHYDRATE [Concomitant]
     Dosage: 1.5 GRAM
     Route: 041
     Dates: start: 20110524, end: 20110530
  29. PENCLUSIN [Concomitant]
     Dosage: 12 MILLIGRAM
     Route: 048
  30. NISSEKI POLYGLOBIN-N [Concomitant]
     Dosage: 5 GRAM
     Route: 041
     Dates: start: 20110823, end: 20110824

REACTIONS (7)
  - FEBRILE NEUTROPENIA [None]
  - BLOOD UREA INCREASED [None]
  - RED BLOOD CELL COUNT DECREASED [None]
  - HYPOKALAEMIA [None]
  - WHITE BLOOD CELL COUNT DECREASED [None]
  - PNEUMONIA ASPIRATION [None]
  - PLATELET COUNT DECREASED [None]
